FAERS Safety Report 6039071-8 (Version None)
Quarter: 2009Q1

REPORT INFORMATION
  Report Type: 
  Country: None (occurrence: None)
  Receive Date: 20090115
  Receipt Date: 20090105
  Transmission Date: 20090719
  Serious: Yes (Other)
  Sender: FDA-Public Use
  Company Number: US-WYE-H07534909

PATIENT
  Age: 40 Year
  Sex: Female

DRUGS (6)
  1. EFFEXOR XR [Suspect]
     Indication: DEPRESSION
     Route: 048
     Dates: start: 20050101, end: 20081101
  2. EFFEXOR XR [Suspect]
     Route: 048
     Dates: start: 20081101, end: 20080101
  3. EFFEXOR XR [Suspect]
     Dosage: ^TAPERED ALL THE WAY DOWN TO 37.5 MG^
     Route: 048
     Dates: start: 20080101, end: 20080101
  4. EFFEXOR XR [Suspect]
     Dosage: ^OPENING THE CAPSULES AND TAKING 1/2 OF A CAPSULE^
     Route: 048
     Dates: start: 20080101, end: 20081201
  5. WELLBUTRIN SR [Concomitant]
     Dates: start: 20081101
  6. VALIUM [Concomitant]
     Indication: ANXIETY
     Dosage: UNKNOWN AMOUNT PRN

REACTIONS (11)
  - DIARRHOEA [None]
  - DIZZINESS [None]
  - DRUG WITHDRAWAL SYNDROME [None]
  - HALLUCINATION, VISUAL [None]
  - IMPAIRED DRIVING ABILITY [None]
  - NAUSEA [None]
  - PARAESTHESIA [None]
  - PYREXIA [None]
  - THINKING ABNORMAL [None]
  - TINNITUS [None]
  - VAGINAL HAEMORRHAGE [None]
